FAERS Safety Report 20083274 (Version 1)
Quarter: 2021Q4

REPORT INFORMATION
  Report Type: Report from Study
  Country: US (occurrence: US)
  Receive Date: 20211117
  Receipt Date: 20211117
  Transmission Date: 20220303
  Serious: No
  Sender: FDA-Public Use
  Company Number: US-ACADIA PHARMACEUTICALS INC.-ACA-2021-PIM-003808

PATIENT
  Age: 83 Year
  Sex: Female

DRUGS (18)
  1. NUPLAZID [Suspect]
     Active Substance: PIMAVANSERIN TARTRATE
     Indication: Parkinson^s disease psychosis
     Dosage: 34 MILLIGRAM, QD
     Route: 048
     Dates: start: 20211008, end: 20211023
  2. NUPLAZID [Suspect]
     Active Substance: PIMAVANSERIN TARTRATE
     Indication: Hallucination
  3. NUPLAZID [Suspect]
     Active Substance: PIMAVANSERIN TARTRATE
     Indication: Delusion
  4. LEVOTHYROXINE [Concomitant]
     Active Substance: LEVOTHYROXINE
  5. POTASSIUM [Concomitant]
     Active Substance: POTASSIUM
  6. REMERON [Concomitant]
     Active Substance: MIRTAZAPINE
  7. RIVASTIGMINE [Concomitant]
     Active Substance: RIVASTIGMINE
  8. SEROQUEL [Concomitant]
     Active Substance: QUETIAPINE FUMARATE
  9. RABEPRAZOLE [Concomitant]
     Active Substance: RABEPRAZOLE
  10. NITROGLYCERIN [Concomitant]
     Active Substance: NITROGLYCERIN
  11. CALCITRIOL [Concomitant]
     Active Substance: CALCITRIOL
  12. CALCIUM [Concomitant]
     Active Substance: CALCIUM
  13. VALSARTAN [Concomitant]
     Active Substance: VALSARTAN
  14. LIPITOR [Concomitant]
     Active Substance: ATORVASTATIN CALCIUM
  15. DORZOLAMIDE [Concomitant]
     Active Substance: DORZOLAMIDE
  16. LATANOPROST [Concomitant]
     Active Substance: LATANOPROST
  17. ASPIRIN [Concomitant]
     Active Substance: ASPIRIN
  18. COMBIGAN [Concomitant]
     Active Substance: BRIMONIDINE TARTRATE\TIMOLOL MALEATE

REACTIONS (1)
  - Peripheral swelling [Not Recovered/Not Resolved]

NARRATIVE: CASE EVENT DATE: 20211026
